FAERS Safety Report 4930966-2 (Version None)
Quarter: 2006Q1

REPORT INFORMATION
  Report Type: 
  Country: None (occurrence: None)
  Receive Date: 20060227
  Receipt Date: 20060125
  Transmission Date: 20060701
  Serious: Yes (Other)
  Sender: FDA-Public Use
  Company Number: 2006BH001329

PATIENT
  Age: 9 Year
  Sex: Female

DRUGS (4)
  1. ATROPINE [Suspect]
     Indication: MYRINGOTOMY
     Dosage: 0.2 MG; IV
     Route: 042
  2. THIOPENTAL SODIUM [Suspect]
  3. ATRACURIUM BESYLATE [Suspect]
  4. LIDOCAINE [Suspect]

REACTIONS (1)
  - VENTRICULAR TACHYCARDIA [None]
